FAERS Safety Report 8452419-X (Version None)
Quarter: 2012Q2

REPORT INFORMATION
  Report Type: 
  Country: None (occurrence: None)
  Receive Date: 20120620
  Receipt Date: 20120618
  Transmission Date: 20120825
  Serious: Yes (Hospitalization, Other)
  Sender: FDA-Public Use
  Company Number: US-PFIZER INC-2012117085

PATIENT
  Sex: Female
  Weight: 71.655 kg

DRUGS (4)
  1. SYNTHROID [Concomitant]
     Indication: HYPOTHYROIDISM
     Dosage: UNK
  2. TIKOSYN [Suspect]
     Indication: ATRIAL FIBRILLATION
  3. ACETAMINOPHEN [Concomitant]
     Indication: HEADACHE
     Dosage: UNK
  4. TIKOSYN [Suspect]
     Indication: POSTOPERATIVE CARE
     Dosage: 0.5 MG, 2X/DAY
     Route: 048
     Dates: start: 20060101

REACTIONS (9)
  - LOSS OF CONSCIOUSNESS [None]
  - VENTRICULAR TACHYCARDIA [None]
  - BLOOD COUNT ABNORMAL [None]
  - SWELLING [None]
  - PULMONARY HYPERTENSION [None]
  - MALAISE [None]
  - ATRIAL FIBRILLATION [None]
  - PROTEIN TOTAL DECREASED [None]
  - HEART RATE ABNORMAL [None]
